FAERS Safety Report 25355721 (Version 2)
Quarter: 2025Q4

REPORT INFORMATION
  Report Type: Spontaneous
  Country: US (occurrence: US)
  Receive Date: 20250525
  Receipt Date: 20251027
  Transmission Date: 20260117
  Serious: No
  Sender: SANOFI AVENTIS
  Company Number: US-SA-2025SA148306

PATIENT
  Age: 38 Year
  Sex: Female

DRUGS (2)
  1. DUPIXENT [Suspect]
     Active Substance: DUPILUMAB
     Indication: Dermatitis atopic
     Dosage: 600 MG, 1X
     Route: 058
     Dates: start: 20241004, end: 20241004
  2. DUPIXENT [Suspect]
     Active Substance: DUPILUMAB
     Dosage: 300 MG, QOW
     Route: 058
     Dates: start: 202410

REACTIONS (2)
  - Blood glucose increased [Recovered/Resolved]
  - Dermatitis atopic [Unknown]

NARRATIVE: CASE EVENT DATE: 20250301
